FAERS Safety Report 12912402 (Version 3)
Quarter: 2016Q4

REPORT INFORMATION
  Report Type: Spontaneous
  Country: US (occurrence: US)
  Receive Date: 20161104
  Receipt Date: 20161130
  Transmission Date: 20170207
  Serious: Yes (Hospitalization, Other)
  Sender: FDA-Public Use
  Company Number: US-SAOL THERAPEUTICS-2016SAO00986

PATIENT
  Age: 17 Year
  Sex: Male
  Weight: 39.46 kg

DRUGS (7)
  1. LIORESAL [Suspect]
     Active Substance: BACLOFEN
     Indication: MUSCLE SPASTICITY
     Dosage: 100 ?G, \DAY
     Route: 037
     Dates: start: 201301
  2. LIORESAL [Suspect]
     Active Substance: BACLOFEN
     Indication: CEREBRAL PALSY
     Dosage: 600 ?G, \DAY
     Route: 037
     Dates: start: 201301, end: 201301
  3. LIORESAL [Suspect]
     Active Substance: BACLOFEN
     Dosage: 285.4 ?G, \DAY
     Route: 037
     Dates: start: 20160907, end: 20161102
  4. KEPPRA [Concomitant]
     Active Substance: LEVETIRACETAM
  5. LIORESAL [Suspect]
     Active Substance: BACLOFEN
     Dosage: 324.9 ?G, \DAY
     Route: 037
     Dates: start: 20161102
  6. BACLOFEN. [Concomitant]
     Active Substance: BACLOFEN
     Dosage: UNK, AS NEEDED
  7. VALPROIC ACID. [Concomitant]
     Active Substance: VALPROIC ACID

REACTIONS (6)
  - Device dislocation [Unknown]
  - Implant site erosion [Unknown]
  - Skin atrophy [Unknown]
  - Skin irritation [Recovered/Resolved]
  - Complication associated with device [Not Recovered/Not Resolved]
  - Drug withdrawal syndrome [Recovered/Resolved]

NARRATIVE: CASE EVENT DATE: 201301
